FAERS Safety Report 9630532 (Version 3)
Quarter: 2013Q4

REPORT INFORMATION
  Report Type: Spontaneous
  Country: US (occurrence: US)
  Receive Date: 20131018
  Receipt Date: 20131220
  Transmission Date: 20140711
  Serious: Yes (Other)
  Sender: FDA-Public Use
  Company Number: US-SHIRE-ALL1-2013-07024

PATIENT
  Age: 16 Year
  Sex: Male
  Weight: 117.91 kg

DRUGS (2)
  1. VYVANSE [Suspect]
     Indication: ATTENTION DEFICIT/HYPERACTIVITY DISORDER
     Dosage: 20 MG, 1X/DAY:QD
     Route: 048
     Dates: start: 201303, end: 20130930
  2. RITALIN [Concomitant]
     Indication: ATTENTION DEFICIT/HYPERACTIVITY DISORDER
     Dosage: 10 MG, 1X/DAY:QD
     Route: 048
     Dates: start: 201310

REACTIONS (5)
  - Infectious mononucleosis [Recovered/Resolved]
  - Joint injury [Recovered/Resolved]
  - Overdose [Recovered/Resolved]
  - Product quality issue [Unknown]
  - Sensory disturbance [Recovered/Resolved]
